FAERS Safety Report 9853393 (Version 1)
Quarter: 2014Q1

REPORT INFORMATION
  Report Type: Spontaneous
  Country: AU (occurrence: AU)
  Receive Date: 20140129
  Receipt Date: 20140129
  Transmission Date: 20141002
  Serious: Yes (Other)
  Sender: FDA-Public Use
  Company Number: AU-JNJFOC-20140112780

PATIENT
  Age: 47 Year
  Sex: Female

DRUGS (2)
  1. INFLIXIMAB, RECOMBINANT [Suspect]
     Indication: PSORIASIS
     Dosage: AT 0, 2 AND 6 WEEKS, THEN 8 WEEKS
     Route: 042
  2. METHOTREXATE [Suspect]
     Indication: PSORIASIS
     Dosage: 2.5 TO 5 MG
     Route: 065

REACTIONS (2)
  - Lupus-like syndrome [Unknown]
  - Autoimmune hepatitis [Recovered/Resolved]
